FAERS Safety Report 7745172-6 (Version None)
Quarter: 2011Q3

REPORT INFORMATION
  Report Type: 
  Country: None (occurrence: None)
  Receive Date: 20110907
  Receipt Date: 20110824
  Transmission Date: 20111222
  Serious: Yes (Other)
  Sender: FDA-Public Use
  Company Number: 1000023381

PATIENT
  Age: 54 Year
  Sex: Female

DRUGS (5)
  1. CITALOPRAM HYDROBROMIDE [Suspect]
     Indication: HOT FLUSH
     Dosage: 10 MG (10 MG, 1 IN 1 D), ORAL
     Route: 048
     Dates: start: 20110728, end: 20110730
  2. VITAMIN B COMPLEX (VITAMIN B COMPLEX) (VITAMIN B COMPLEX) [Concomitant]
  3. BLACK COHOSH (CIMICIFUGA RACEMOSA) (CIMICIFUGA RACEMOSA) [Concomitant]
  4. CLONIDINE [Concomitant]
  5. ZOPICLONE (ZOPICLONE) (ZOPICLONE) [Concomitant]

REACTIONS (4)
  - PALPITATIONS [None]
  - SEROTONIN SYNDROME [None]
  - PARANOIA [None]
  - AGITATION [None]
